FAERS Safety Report 8756321 (Version 1)
Quarter: 2012Q4

REPORT INFORMATION
  Report Type: 
  Country: US (occurrence: US)
  Receive Date: 20120828
  Receipt Date: 20120828
  Transmission Date: 20130627
  Serious: Yes (Disabling)
  Sender: FDA-Public Use
  Company Number: US-SANOFI-AVENTIS-2012SA059625

PATIENT
  Age: 59 Year
  Sex: Male

DRUGS (5)
  1. LANTUS [Suspect]
     Indication: TYPE 2 DIABETES MELLITUS
     Dosage: Dose:32 unit(s)
     Route: 058
     Dates: start: 201202
  2. LANTUS [Suspect]
     Indication: TYPE 2 DIABETES MELLITUS
     Dosage: lowered dose
     Route: 058
     Dates: start: 201208
  3. LANTUS [Suspect]
     Indication: TYPE 2 DIABETES MELLITUS
     Dosage: Dose:25 unit(s)
     Route: 058
     Dates: start: 20120816
  4. SOLOSTAR [Suspect]
     Indication: TYPE 2 DIABETES MELLITUS
     Dates: start: 201202
  5. NOVOLOG [Suspect]
     Route: 065

REACTIONS (3)
  - Pain [Not Recovered/Not Resolved]
  - Hypoglycaemia [Recovered/Resolved]
  - Hyperhidrosis [Recovered/Resolved]
